FAERS Safety Report 10307581 (Version 1)
Quarter: 2014Q3

REPORT INFORMATION
  Report Type: Spontaneous
  Country: US (occurrence: None)
  Receive Date: 20140714
  Receipt Date: 20140714
  Transmission Date: 20150326
  Serious: No
  Sender: FDA-Public Use
  Company Number: None

PATIENT
  Age: 24 Year
  Sex: Female
  Weight: 70.31 kg

DRUGS (1)
  1. SUMATRIPTAN 100 MG MYLAN [Suspect]
     Active Substance: SUMATRIPTAN
     Indication: MIGRAINE
     Dosage: 1 PILL AT ONSET OF HA TAKEN BY MOUTH
     Route: 048

REACTIONS (3)
  - Heart rate irregular [None]
  - Palpitations [None]
  - Chest pain [None]
